FAERS Safety Report 10082639 (Version 1)
Quarter: 2014Q2

REPORT INFORMATION
  Report Type: Spontaneous
  Country: DE (occurrence: DE)
  Receive Date: 20140416
  Receipt Date: 20140416
  Transmission Date: 20141212
  Serious: Yes (Death)
  Sender: FDA-Public Use
  Company Number: GXKR2014DE001610

PATIENT
  Age: 82 Year
  Sex: Male
  Weight: 105 kg

DRUGS (6)
  1. ACETYLSALICYLIC ACID [Suspect]
     Indication: CORONARY ARTERY DISEASE
     Route: 048
     Dates: start: 201208
  2. XARELTO [Suspect]
     Indication: ATRIAL FLUTTER
     Route: 048
     Dates: start: 2013
  3. PANTOZOL [Concomitant]
     Indication: PROPHYLAXIS
     Dosage: 20
     Route: 048
     Dates: start: 2012
  4. SIMVASTATIN [Concomitant]
     Indication: HYPERCHOLESTEROLAEMIA
     Dosage: 20
     Route: 048
     Dates: start: 201208
  5. TORASEMID [Concomitant]
     Indication: CARDIAC FAILURE
     Dosage: 10
     Route: 048
     Dates: start: 2012
  6. METOPROLOL [Concomitant]
     Indication: HYPERTENSION
     Route: 048
     Dates: start: 2012

REACTIONS (1)
  - Gastrointestinal haemorrhage [Fatal]
